FAERS Safety Report 22273400 (Version 1)
Quarter: 2023Q2

REPORT INFORMATION
  Report Type: Spontaneous
  Country: GB (occurrence: GB)
  Receive Date: 20230502
  Receipt Date: 20230502
  Transmission Date: 20230722
  Serious: Yes (Other)
  Sender: FDA-Public Use
  Company Number: None

PATIENT
  Age: 63 Year

DRUGS (3)
  1. ESTRADIOL [Suspect]
     Active Substance: ESTRADIOL
     Dosage: DAILY FOR TWO WEEKS
  2. ESTRADIOL [Suspect]
     Active Substance: ESTRADIOL
     Dosage: TWICE A WEEK LONGER TERM 24 PESSARY
  3. TERBINAFINE [Concomitant]
     Active Substance: TERBINAFINE
     Dosage: 250 MG, 1X/DAY

REACTIONS (2)
  - Ischaemic stroke [Unknown]
  - Off label use [Unknown]
